FAERS Safety Report 16877154 (Version 1)
Quarter: 2019Q4

REPORT INFORMATION
  Report Type: Spontaneous
  Country: US (occurrence: US)
  Receive Date: 20191002
  Receipt Date: 20191002
  Transmission Date: 20200122
  Serious: No
  Sender: FDA-Public Use
  Company Number: None

PATIENT
  Age: 77 Year
  Sex: Male
  Weight: 83.25 kg

DRUGS (4)
  1. C PAP MACHINE [Concomitant]
  2. FINISTERIDE 1 OR 5MG MERCK [Concomitant]
     Active Substance: FINASTERIDE
  3. STIOLTA [Concomitant]
  4. CIPROFLOXACIN HCL 500 MG TAB [Suspect]
     Active Substance: CIPROFLOXACIN HYDROCHLORIDE
     Indication: NEPHROLITHIASIS
     Dosage: ?          QUANTITY:1 TABLET(S);?
     Route: 048
     Dates: start: 20181012, end: 20181022

REACTIONS (7)
  - Musculoskeletal stiffness [None]
  - Mass [None]
  - Hypertension [None]
  - Back pain [None]
  - Myalgia [None]
  - Fatigue [None]
  - Tendon disorder [None]

NARRATIVE: CASE EVENT DATE: 20181025
